FAERS Safety Report 16634553 (Version 2)
Quarter: 2019Q4

REPORT INFORMATION
  Report Type: Report from Study
  Country: US (occurrence: US)
  Receive Date: 20190726
  Receipt Date: 20191219
  Transmission Date: 20200122
  Serious: No
  Sender: FDA-Public Use
  Company Number: PHEH2019US030463

PATIENT
  Sex: Male

DRUGS (1)
  1. ENTRESTO [Suspect]
     Active Substance: SACUBITRIL\VALSARTAN
     Indication: PRODUCT USED FOR UNKNOWN INDICATION
     Route: 048

REACTIONS (7)
  - Weight increased [Unknown]
  - Skin exfoliation [Unknown]
  - Renal disorder [Unknown]
  - Vision blurred [Unknown]
  - Cough [Unknown]
  - Visual field defect [Unknown]
  - Blood uric acid abnormal [Unknown]
